FAERS Safety Report 18463596 (Version 1)
Quarter: 2020Q4

REPORT INFORMATION
  Report Type: Spontaneous
  Country: DE (occurrence: DE)
  Receive Date: 20201104
  Receipt Date: 20201104
  Transmission Date: 20210114
  Serious: Yes (Hospitalization)
  Sender: FDA-Public Use
  Company Number: DE-NOVOPROD-763044

PATIENT
  Age: 10 Year
  Sex: Female

DRUGS (3)
  1. NOVORAPID [Suspect]
     Active Substance: INSULIN ASPART
     Indication: DIABETES MELLITUS
     Dosage: UNK
     Route: 058
  2. NOVORAPID [Suspect]
     Active Substance: INSULIN ASPART
     Dosage: NEW CARTRIDGE
     Route: 058
  3. NOVORAPID [Suspect]
     Active Substance: INSULIN ASPART
     Dosage: 2.05 IU
     Route: 058
     Dates: start: 20201026

REACTIONS (3)
  - Diabetic hyperglycaemic coma [Recovering/Resolving]
  - Hyperglycaemic seizure [Recovering/Resolving]
  - Blood glucose increased [Recovered/Resolved]

NARRATIVE: CASE EVENT DATE: 2020
